FAERS Safety Report 6234265-0 (Version None)
Quarter: 2009Q2

REPORT INFORMATION
  Report Type: 
  Country: None (occurrence: None)
  Receive Date: 20090618
  Receipt Date: 20090610
  Transmission Date: 20091009
  Serious: No
  Sender: FDA-Public Use
  Company Number: JP-ASTRAZENECA-2009AP03276

PATIENT
  Age: 20 Year
  Sex: Male
  Weight: 67 kg

DRUGS (8)
  1. XYLOCAINE W/ EPINEPHRINE [Suspect]
     Indication: INFILTRATION ANAESTHESIA
     Route: 061
     Dates: start: 20080827, end: 20080827
  2. DIPRIVAN [Suspect]
     Indication: INDUCTION AND MAINTENANCE OF ANAESTHESIA
     Dosage: INTRODUCTION: 3 MCG/ML, MAINTENANCE: 2.5 MG/ML
     Route: 042
     Dates: start: 20080827, end: 20080827
  3. XYLOCAINE [Suspect]
     Indication: LOCAL ANAESTHESIA
     Dosage: DOSE UNKNOWN
     Route: 049
     Dates: start: 20080827, end: 20080827
  4. ATROPINE [Concomitant]
     Indication: PREMEDICATION
     Route: 030
     Dates: start: 20080827, end: 20080827
  5. PETHIDINE HYDROCHLORIDE [Concomitant]
     Indication: PREMEDICATION
     Route: 030
     Dates: start: 20080827, end: 20080827
  6. REMIFENTANIL HYDROCHLORIDE [Concomitant]
     Indication: INDUCTION AND MAINTENANCE OF ANAESTHESIA
     Dosage: INTRODUCTION: 0.25 MCG/KG/MIN, MAINTENANCE: 0.2 MCG/KG/MIN
     Route: 042
     Dates: start: 20080827, end: 20080827
  7. ROCURONIUM BROMIDE [Concomitant]
     Indication: INDUCTION OF ANAESTHESIA
     Route: 042
     Dates: start: 20080827, end: 20080827
  8. OXYGEN FOR MEDICAL USE [Concomitant]
     Indication: MAINTENANCE OF ANAESTHESIA
     Dosage: 1 L/MIN
     Route: 055
     Dates: start: 20080827, end: 20080827

REACTIONS (2)
  - HYPOTENSION [None]
  - NODAL RHYTHM [None]
